FAERS Safety Report 8524055-8 (Version None)
Quarter: 2012Q3

REPORT INFORMATION
  Report Type: 
  Country: None (occurrence: None)
  Receive Date: 20120720
  Receipt Date: 20120713
  Transmission Date: 20120928
  Serious: Yes (Other)
  Sender: FDA-Public Use
  Company Number: ES-SANOFI-AVENTIS-2012SA051179

PATIENT
  Age: 29 Year
  Sex: Female

DRUGS (8)
  1. MEROPENEM [Concomitant]
     Indication: WOUND INFECTION
  2. DAPTOMYCIN [Concomitant]
     Indication: WOUND INFECTION
  3. RIFAMPICIN [Interacting]
     Route: 065
  4. LEVOFLOXACIN [Concomitant]
     Route: 048
  5. RIFAMPICIN [Interacting]
     Indication: WOUND INFECTION
     Route: 065
  6. RIFAMPICIN [Interacting]
     Route: 065
  7. RIFAMPICIN [Suspect]
     Route: 065
  8. LINEZOLID [Interacting]
     Indication: WOUND INFECTION
     Route: 065

REACTIONS (3)
  - WOUND SECRETION [None]
  - DRUG INTERACTION [None]
  - DRUG LEVEL DECREASED [None]
